FAERS Safety Report 6253053-2 (Version None)
Quarter: 2009Q2

REPORT INFORMATION
  Report Type: 
  Country: None (occurrence: None)
  Receive Date: 20090629
  Receipt Date: 20090615
  Transmission Date: 20091009
  Serious: Yes (Death, Hospitalization, Other)
  Sender: FDA-Public Use
  Company Number: 82568

PATIENT
  Age: 66 Year
  Sex: Female

DRUGS (1)
  1. RIFAMPIN [Suspect]
     Indication: CULTURE NEGATIVE

REACTIONS (2)
  - ACUTE HEPATIC FAILURE [None]
  - CARDIAC ARREST [None]
